FAERS Safety Report 23977281 (Version 3)
Quarter: 2024Q2

REPORT INFORMATION
  Report Type: Spontaneous
  Country: GB (occurrence: GB)
  Receive Date: 20240614
  Receipt Date: 20240627
  Transmission Date: 20240716
  Serious: Yes (Other)
  Sender: FDA-Public Use
  Company Number: GB-MLMSERVICE-20240530-PI081756-00097-1

PATIENT

DRUGS (5)
  1. PREDNISOLONE [Suspect]
     Active Substance: PREDNISOLONE
     Indication: Cytopenia
     Dosage: UNK (TAPERING)
  2. PREDNISOLONE [Suspect]
     Active Substance: PREDNISOLONE
     Indication: Neutropenia
     Dosage: 5 MG (CONTINUED ON 5MG)
     Dates: start: 2023
  3. CYCLOSPORINE [Suspect]
     Active Substance: CYCLOSPORINE
     Indication: Prophylaxis against graft versus host disease
     Dosage: UNK
     Dates: start: 2006, end: 2007
  4. CYCLOSPORINE [Suspect]
     Active Substance: CYCLOSPORINE
     Indication: Cytopenia
  5. SIROLIMUS [Suspect]
     Active Substance: SIROLIMUS
     Indication: Cytopenia
     Dosage: 2 MG
     Dates: start: 2023

REACTIONS (2)
  - Epstein-Barr virus associated lymphoma [Unknown]
  - Diffuse large B-cell lymphoma [Unknown]
